FAERS Safety Report 16453343 (Version 2)
Quarter: 2019Q3

REPORT INFORMATION
  Report Type: Spontaneous
  Country: US (occurrence: US)
  Receive Date: 20190619
  Receipt Date: 20190911
  Transmission Date: 20191004
  Serious: No
  Sender: FDA-Public Use
  Company Number: US-SA-2019SA163512

PATIENT
  Age: 18 Year
  Sex: Male

DRUGS (3)
  1. DUPIXENT [Suspect]
     Active Substance: DUPILUMAB
     Indication: DERMATITIS ATOPIC
     Dosage: 600 MG, 1X
     Route: 058
     Dates: start: 20190603, end: 20190603
  2. DUPIXENT [Suspect]
     Active Substance: DUPILUMAB
     Dosage: 300 MG, QOW
     Route: 058
     Dates: start: 201906
  3. DESONIDE. [Concomitant]
     Active Substance: DESONIDE

REACTIONS (4)
  - Hypersensitivity [Unknown]
  - Eye pruritus [Recovered/Resolved]
  - Eye swelling [Recovered/Resolved]
  - Sneezing [Unknown]

NARRATIVE: CASE EVENT DATE: 201906
